FAERS Safety Report 22206433 (Version 1)
Quarter: 2023Q2

REPORT INFORMATION
  Report Type: Spontaneous
  Country: US (occurrence: None)
  Receive Date: 20230412
  Receipt Date: 20230412
  Transmission Date: 20230721
  Serious: Yes (Other)
  Sender: FDA-Public Use
  Company Number: None

PATIENT
  Age: 54 Year
  Sex: Female
  Weight: 69.75 kg

DRUGS (7)
  1. PRIALT [Suspect]
     Active Substance: ZICONOTIDE ACETATE
     Indication: Complex regional pain syndrome
     Dosage: OTHER FREQUENCY : CONTINUOUS;?
     Route: 008
  2. DEVICE [Concomitant]
     Active Substance: DEVICE
  3. gastric pacemaker [Concomitant]
  4. LYRICA [Concomitant]
     Active Substance: PREGABALIN
  5. FLEXERIL [Concomitant]
     Active Substance: CYCLOBENZAPRINE HYDROCHLORIDE
  6. FAMOTIDINE [Concomitant]
     Active Substance: FAMOTIDINE
  7. LANSOPRAZOLE [Concomitant]
     Active Substance: LANSOPRAZOLE

REACTIONS (15)
  - Amnesia [None]
  - Confusional state [None]
  - Disorientation [None]
  - Vertigo [None]
  - Cognitive disorder [None]
  - Coordination abnormal [None]
  - Abnormal behaviour [None]
  - Fall [None]
  - Facial bones fracture [None]
  - Pharyngeal perforation [None]
  - Haemorrhage [None]
  - Feeling abnormal [None]
  - Injury [None]
  - Product complaint [None]
  - Loss of personal independence in daily activities [None]

NARRATIVE: CASE EVENT DATE: 20181218
